FAERS Safety Report 20901948 (Version 3)
Quarter: 2022Q4

REPORT INFORMATION
  Report Type: Report from Study
  Country: US (occurrence: US)
  Receive Date: 20220601
  Receipt Date: 20221125
  Transmission Date: 20230112
  Serious: Yes (Other)
  Sender: FDA-Public Use
  Company Number: US-HORIZON THERAPEUTICS-HZN-2022-003934

PATIENT

DRUGS (2)
  1. RAYOS [Suspect]
     Active Substance: PREDNISONE
     Indication: Adrenocortical insufficiency acute
     Dosage: 2 MG, QD (NIGHTLY)
     Route: 048
     Dates: start: 20200421
  2. RAYOS [Suspect]
     Active Substance: PREDNISONE
     Dosage: 5 MG, QD (NIGHTLY)
     Route: 048
     Dates: start: 20200421

REACTIONS (3)
  - Spinal fusion surgery [Unknown]
  - Arthritis [Unknown]
  - Diabetic ulcer [Unknown]

NARRATIVE: CASE EVENT DATE: 20220101
